FAERS Safety Report 4377692-9 (Version None)
Quarter: 2004Q2

REPORT INFORMATION
  Report Type: 
  Country: None (occurrence: None)
  Receive Date: 20040608
  Receipt Date: 20040527
  Transmission Date: 20050107
  Serious: Yes (Disabling)
  Sender: FDA-Public Use
  Company Number: 04P-008-0262359-00

PATIENT
  Age: 10 Year
  Sex: Male

DRUGS (1)
  1. VALPROATE SODIUM [Suspect]
     Indication: EPILEPSY
     Dosage: 12.5 MG, 2 IN 1 D, PER ORAL
     Route: 048
     Dates: start: 20030101

REACTIONS (1)
  - ENURESIS [None]
